FAERS Safety Report 8950784 (Version 1)
Quarter: 2012Q4

REPORT INFORMATION
  Report Type: Spontaneous
  Country: FR (occurrence: None)
  Receive Date: 20121128
  Receipt Date: 20121128
  Transmission Date: 20130627
  Serious: Yes (Life-Threatening, Hospitalization)
  Sender: FDA-Public Use
  Company Number: 2012-1359

PATIENT

DRUGS (3)
  1. CARFILZOMIB [Suspect]
     Indication: MULTIPLE MYELOMA
     Dates: start: 20120515, end: 20120523
  2. MELPHALAN [Suspect]
     Indication: MULTIPLE MYELOMA
     Dates: start: 20120515, end: 20120518
  3. PREDNISONE [Suspect]
     Indication: MULTIPLE MYELOMA
     Dates: start: 20120515, end: 20120518

REACTIONS (2)
  - Acute respiratory distress syndrome [None]
  - Cardiopulmonary failure [None]
